FAERS Safety Report 25895455 (Version 1)
Quarter: 2025Q4

REPORT INFORMATION
  Report Type: Report from Study
  Country: CA (occurrence: CA)
  Receive Date: 20251008
  Receipt Date: 20251008
  Transmission Date: 20260118
  Serious: Yes (Hospitalization)
  Sender: ABBVIE
  Company Number: CA-ABBVIE-6491525

PATIENT
  Age: 63 Year
  Sex: Male

DRUGS (3)
  1. VENCLEXTA [Suspect]
     Active Substance: VENETOCLAX
     Indication: Acute myeloid leukaemia
     Dosage: FORM STRENGTH 100 MG
     Route: 048
     Dates: start: 20250801
  2. HYDROXYUREA [Concomitant]
     Active Substance: HYDROXYUREA
     Indication: Polycythaemia vera
     Dosage: PERORAL
  3. AZACITIDINE [Concomitant]
     Active Substance: AZACITIDINE
     Indication: Product used for unknown indication

REACTIONS (3)
  - Paraplegia [Unknown]
  - Gait inability [Unknown]
  - Hypoaesthesia [Unknown]

NARRATIVE: CASE EVENT DATE: 20250101
